FAERS Safety Report 23242670 (Version 3)
Quarter: 2025Q1

REPORT INFORMATION
  Report Type: Report from Study
  Country: CA (occurrence: CA)
  Receive Date: 20231129
  Receipt Date: 20250114
  Transmission Date: 20250408
  Serious: Yes (Other)
  Sender: BIOCON
  Company Number: CA-MYLANLABS-2022M1132899

PATIENT

DRUGS (2)
  1. HULIO [Suspect]
     Active Substance: ADALIMUMAB-FKJP
     Indication: Rheumatoid arthritis
     Route: 058
     Dates: start: 20211030, end: 202410
  2. HULIO [Suspect]
     Active Substance: ADALIMUMAB-FKJP
     Route: 058
     Dates: start: 20211030

REACTIONS (4)
  - Dementia [Unknown]
  - Hip arthroplasty [Unknown]
  - Malaise [Unknown]
  - Memory impairment [Unknown]

NARRATIVE: CASE EVENT DATE: 20241029
